FAERS Safety Report 20304397 (Version 1)
Quarter: 2022Q1

REPORT INFORMATION
  Report Type: Report from Study
  Country: IT (occurrence: IT)
  Receive Date: 20220106
  Receipt Date: 20220106
  Transmission Date: 20220423
  Serious: Yes (Hospitalization)
  Sender: FDA-Public Use
  Company Number: None

PATIENT
  Age: 58 Year
  Sex: Male

DRUGS (2)
  1. PREDNISONE [Suspect]
     Active Substance: PREDNISONE
     Dosage: ADDITIONAL INFORMATION:ABUSE / MISUSE
     Route: 048
     Dates: start: 20211205, end: 20211205
  2. COCODAMOL [Suspect]
     Active Substance: ACETAMINOPHEN\CODEINE PHOSPHATE
     Dosage: CODAMOL 500 MG + 30 MG EFFERVESCENT TABLETS,UNIT DOSE:15DF,ADDITIONAL INFORMATION:ABUSE / MISUSE
     Route: 048
     Dates: start: 20211205, end: 20211205

REACTIONS (2)
  - Suicide attempt [Recovered/Resolved]
  - Intentional overdose [Recovered/Resolved]

NARRATIVE: CASE EVENT DATE: 20211205
